FAERS Safety Report 6551509-6 (Version None)
Quarter: 2010Q1

REPORT INFORMATION
  Report Type: 
  Country: None (occurrence: None)
  Receive Date: 20100122
  Receipt Date: 20090723
  Transmission Date: 20100710
  Serious: Yes (Hospitalization)
  Sender: FDA-Public Use
  Company Number: WAES 0907USA05798

PATIENT
  Age: 63 Year
  Sex: Female

DRUGS (1)
  1. INVANZ [Suspect]
     Dosage: 1 GM/DAILY/IV
     Route: 042
     Dates: start: 20051001

REACTIONS (2)
  - HALLUCINATION [None]
  - MENTAL STATUS CHANGES [None]
